FAERS Safety Report 4360790-3 (Version None)
Quarter: 2004Q2

REPORT INFORMATION
  Report Type: 
  Country: None (occurrence: None)
  Receive Date: 20040517
  Receipt Date: 20040511
  Transmission Date: 20050107
  Serious: Yes (Hospitalization)
  Sender: FDA-Public Use
  Company Number: 2004212942JP

PATIENT
  Age: 40 Year
  Sex: Female

DRUGS (2)
  1. AZULFIDINE EN-TABS [Suspect]
     Dosage: 1000 MG/DAY, ORAL
     Route: 048
     Dates: start: 20040420, end: 20040427
  2. SHIOSOL (SODIUM AUROTHIOMALATE) [Concomitant]

REACTIONS (5)
  - ALANINE AMINOTRANSFERASE INCREASED [None]
  - EXANTHEM [None]
  - FACE OEDEMA [None]
  - HEPATIC FUNCTION ABNORMAL [None]
  - PYREXIA [None]
